FAERS Safety Report 14477407 (Version 1)
Quarter: 2018Q1

REPORT INFORMATION
  Report Type: Report from Study
  Country: US (occurrence: US)
  Receive Date: 20180201
  Receipt Date: 20180201
  Transmission Date: 20180509
  Serious: No
  Sender: FDA-Public Use
  Company Number: US-EXELIXIS-CABO-17010679

PATIENT
  Sex: Female

DRUGS (2)
  1. CABOMETYX [Suspect]
     Active Substance: CABOZANTINIB S-MALATE
     Dosage: 40 MG, QD
     Route: 048
     Dates: start: 20170925
  2. CABOMETYX [Suspect]
     Active Substance: CABOZANTINIB S-MALATE
     Indication: RENAL CANCER
     Dosage: 80 MG, QD
     Route: 048
     Dates: start: 20170804, end: 2017

REACTIONS (11)
  - Laboratory test abnormal [Unknown]
  - Flank pain [Unknown]
  - Nausea [Unknown]
  - Hypertension [Unknown]
  - Vomiting [Unknown]
  - Back pain [Unknown]
  - Decreased appetite [Unknown]
  - Blood glucose decreased [Unknown]
  - Dyspnoea [Unknown]
  - Dysgeusia [Unknown]
  - Fatigue [Unknown]
